FAERS Safety Report 6520714-7 (Version None)
Quarter: 2009Q4

REPORT INFORMATION
  Report Type: 
  Country: None (occurrence: None)
  Receive Date: 20091229
  Receipt Date: 20091219
  Transmission Date: 20100525
  Serious: Yes (Hospitalization)
  Sender: FDA-Public Use
  Company Number: DE-ABBOTT-09P-062-0572808-00

PATIENT
  Sex: Male
  Weight: 80 kg

DRUGS (2)
  1. HUMIRA [Suspect]
     Indication: ANKYLOSING SPONDYLITIS
     Route: 058
     Dates: start: 20090302, end: 20091109
  2. DICLOFENAC SODIUM [Concomitant]
     Indication: ANKYLOSING SPONDYLITIS
     Dates: start: 20091101

REACTIONS (3)
  - DIZZINESS [None]
  - FUNGAL INFECTION [None]
  - OPTIC NERVE DISORDER [None]
